FAERS Safety Report 6047619-2 (Version None)
Quarter: 2009Q1

REPORT INFORMATION
  Report Type: 
  Country: None (occurrence: None)
  Receive Date: 20090123
  Receipt Date: 20090121
  Transmission Date: 20090719
  Serious: Yes (Other)
  Sender: FDA-Public Use
  Company Number: NL-TEVA-183346ISR

PATIENT
  Age: 56 Year
  Sex: Female

DRUGS (5)
  1. DOXORUBICIN HCL [Suspect]
     Indication: BREAST CANCER
  2. CYCLOPHOSPHAMIDE [Suspect]
     Indication: BREAST CANCER
  3. DOCETAXEL [Concomitant]
     Indication: METASTASIS
  4. VINORELBINE [Concomitant]
     Indication: METASTASIS
  5. TRASTUZUMAB [Concomitant]
     Indication: METASTASIS

REACTIONS (4)
  - EJECTION FRACTION DECREASED [None]
  - METASTASES TO BONE [None]
  - METASTASES TO LIVER [None]
  - METASTASES TO OVARY [None]
